FAERS Safety Report 14554098 (Version 4)
Quarter: 2018Q1

REPORT INFORMATION
  Report Type: Spontaneous
  Country: JP (occurrence: JP)
  Receive Date: 20180220
  Receipt Date: 20180322
  Transmission Date: 20180509
  Serious: Yes (Other)
  Sender: FDA-Public Use
  Company Number: PHJP2018JP003522

PATIENT
  Age: 37 Year
  Sex: Male
  Weight: 157 kg

DRUGS (8)
  1. SIGNIFOR LAR [Suspect]
     Active Substance: PASIREOTIDE
     Indication: ACROMEGALY
     Dosage: 40 MG, QMO
     Route: 030
  2. ALLOPURINOL. [Concomitant]
     Active Substance: ALLOPURINOL
     Indication: PRODUCT USED FOR UNKNOWN INDICATION
     Dosage: 200 MG, QD
     Route: 065
  3. SIGNIFOR LAR [Suspect]
     Active Substance: PASIREOTIDE
     Dosage: 60 MG, QMO
     Route: 030
  4. LEVOTHYROXINE SODIUM. [Concomitant]
     Active Substance: LEVOTHYROXINE SODIUM
     Indication: PRODUCT USED FOR UNKNOWN INDICATION
     Dosage: 50 UG, QD
     Route: 065
  5. METFORMIN HYDROCHLORIDE. [Concomitant]
     Active Substance: METFORMIN HYDROCHLORIDE
     Indication: DIABETES MELLITUS
     Dosage: 250 MG, QD
     Route: 048
  6. IPRAGLIFLOZIN [Concomitant]
     Active Substance: IPRAGLIFLOZIN
     Indication: DIABETES MELLITUS
     Dosage: 50 MG, QD
     Route: 048
  7. CABERGOLINE. [Concomitant]
     Active Substance: CABERGOLINE
     Indication: SECRETORY ADENOMA OF PITUITARY
     Dosage: 1 MG, QW
     Route: 065
  8. HYDROCORTISONE. [Concomitant]
     Active Substance: HYDROCORTISONE
     Indication: PRODUCT USED FOR UNKNOWN INDICATION
     Dosage: 10 MG, QD
     Route: 065

REACTIONS (3)
  - Glucose tolerance impaired [Recovering/Resolving]
  - Blood glucose increased [Unknown]
  - Diabetes mellitus inadequate control [Recovering/Resolving]
